FAERS Safety Report 21550714 (Version 2)
Quarter: 2022Q4

REPORT INFORMATION
  Report Type: Spontaneous
  Country: US (occurrence: US)
  Receive Date: 20221103
  Receipt Date: 20221206
  Transmission Date: 20230113
  Serious: Yes (Death)
  Sender: FDA-Public Use
  Company Number: US-MORPHOSYS US-2022-MOR002537-US

PATIENT
  Sex: Female

DRUGS (2)
  1. MONJUVI [Suspect]
     Active Substance: TAFASITAMAB-CXIX
     Indication: Diffuse large B-cell lymphoma
     Dosage: 12.5 MILLIGRAM/KILOGRAM, EVERY 3 WEEK CYCLE
     Route: 042
     Dates: start: 202011, end: 202102
  2. REVLIMID [Suspect]
     Active Substance: LENALIDOMIDE
     Indication: Diffuse large B-cell lymphoma
     Dosage: 25 MILLIGRAM/DAY
     Route: 048
     Dates: start: 202011, end: 202102

REACTIONS (2)
  - Death [Fatal]
  - Disease progression [Unknown]
